FAERS Safety Report 13415154 (Version 1)
Quarter: 2017Q2

REPORT INFORMATION
  Report Type: Spontaneous
  Country: AU (occurrence: AU)
  Receive Date: 20170407
  Receipt Date: 20170407
  Transmission Date: 20170830
  Serious: Yes (Life-Threatening, Hospitalization)
  Sender: FDA-Public Use
  Company Number: AU-NAPPMUNDI-GBR-2017-0043762

PATIENT
  Age: 70 Year
  Sex: Male

DRUGS (6)
  1. NORSPAN [Suspect]
     Active Substance: BUPRENORPHINE
     Indication: ARTHRALGIA
     Dosage: 5 MCG, Q1H
     Route: 062
     Dates: start: 20170123, end: 20170127
  2. RAMIPRIL. [Concomitant]
     Active Substance: RAMIPRIL
  3. CRESTOR [Concomitant]
     Active Substance: ROSUVASTATIN CALCIUM
  4. DILANTIN [Concomitant]
     Active Substance: PHENYTOIN
     Dosage: UNK
  5. EZETROL [Concomitant]
     Active Substance: EZETIMIBE
  6. CLONAZEPAM. [Concomitant]
     Active Substance: CLONAZEPAM

REACTIONS (2)
  - Generalised tonic-clonic seizure [Recovered/Resolved]
  - Status epilepticus [Recovered/Resolved]

NARRATIVE: CASE EVENT DATE: 20170127
